FAERS Safety Report 16304615 (Version 1)
Quarter: 2019Q2

REPORT INFORMATION
  Report Type: Spontaneous
  Country: PL (occurrence: PL)
  Receive Date: 20190513
  Receipt Date: 20190513
  Transmission Date: 20190711
  Serious: Yes (Life-Threatening)
  Sender: FDA-Public Use
  Company Number: PL-PFIZER INC-2019199631

PATIENT
  Age: 65 Year
  Sex: Male
  Weight: 89 kg

DRUGS (2)
  1. CARBOPLATIN. [Suspect]
     Active Substance: CARBOPLATIN
     Indication: LUNG NEOPLASM MALIGNANT
     Dosage: 340 MG, UNK
     Route: 042
     Dates: start: 20190312, end: 20190312
  2. ETOPOSID [Suspect]
     Active Substance: ETOPOSIDE
     Indication: LUNG NEOPLASM MALIGNANT
     Dosage: 152 MG, UNK
     Route: 042
     Dates: start: 20190312, end: 20190314

REACTIONS (3)
  - Diarrhoea [Recovering/Resolving]
  - Asthenia [Recovering/Resolving]
  - Hypotension [Recovering/Resolving]

NARRATIVE: CASE EVENT DATE: 20190331
